FAERS Safety Report 8709231 (Version 21)
Quarter: 2016Q3

REPORT INFORMATION
  Report Type: Report from Study
  Country: CA (occurrence: CA)
  Receive Date: 20120806
  Receipt Date: 20160922
  Transmission Date: 20161109
  Serious: Yes (Hospitalization, Other)
  Sender: FDA-Public Use
  Company Number: CA-ROCHE-785471

PATIENT
  Age: 43 Year
  Sex: Female
  Weight: 52.21 kg

DRUGS (30)
  1. RITUXAN [Suspect]
     Active Substance: RITUXIMAB
     Route: 042
  2. CODEINE HYDROCHLORIDE [Concomitant]
     Active Substance: CODEINE HYDROCHLORIDE
  3. DIPHENHYDRAMIN-HCL [Concomitant]
     Route: 048
     Dates: start: 20101124
  4. TYLENOL [Concomitant]
     Active Substance: ACETAMINOPHEN
  5. NOVO-SALMOL [Concomitant]
     Dosage: 2 PUFS 4 TIMES A DAY PRN
     Route: 065
  6. RATIO-SALBUTAMOL [Concomitant]
     Dosage: 4-6 HOURS PRN
     Route: 065
  7. ACETAMINOFEN [Concomitant]
     Active Substance: ACETAMINOPHEN
     Route: 065
     Dates: start: 20111122
  8. FOLIC ACID. [Concomitant]
     Active Substance: FOLIC ACID
  9. RITUXAN [Suspect]
     Active Substance: RITUXIMAB
     Route: 042
  10. PREDNISONE. [Concomitant]
     Active Substance: PREDNISONE
     Route: 065
  11. DIPHENHYDRAMIN-HCL [Concomitant]
     Indication: PREMEDICATION
     Route: 048
     Dates: start: 20120725, end: 20120725
  12. ACETAMINOFEN [Concomitant]
     Active Substance: ACETAMINOPHEN
     Route: 048
     Dates: start: 20101124
  13. CORTISONE [Concomitant]
     Active Substance: CORTISONE\HYDROCORTISONE
  14. FLOVENT [Concomitant]
     Active Substance: FLUTICASONE PROPIONATE
     Route: 065
  15. DIPHENHYDRAMIN-HCL [Concomitant]
     Route: 042
     Dates: start: 20140310
  16. ACETAMINOFEN [Concomitant]
     Active Substance: ACETAMINOPHEN
     Indication: PREMEDICATION
     Route: 048
     Dates: start: 20120725, end: 20120725
  17. ACETAMINOFEN [Concomitant]
     Active Substance: ACETAMINOPHEN
     Route: 065
     Dates: start: 20120712
  18. METHYLPREDNISOLON [Concomitant]
     Active Substance: METHYLPREDNISOLONE
     Indication: PREMEDICATION
     Route: 065
     Dates: start: 20120725, end: 20120725
  19. RATIO-CODEINE [Concomitant]
  20. RITUXAN [Suspect]
     Active Substance: RITUXIMAB
     Indication: RHEUMATOID ARTHRITIS
     Dosage: ON 29/OCT2015, SHE RECEIVED LAST DOSE OF RITUXIMAB.
     Route: 042
  21. BENADRYL [Suspect]
     Active Substance: DIPHENHYDRAMINE HYDROCHLORIDE
     Indication: THROAT IRRITATION
     Route: 048
     Dates: start: 20130128, end: 20130128
  22. BIAXIN [Concomitant]
     Active Substance: CLARITHROMYCIN
     Route: 048
  23. METHYLPREDNISOLON [Concomitant]
     Active Substance: METHYLPREDNISOLONE
     Route: 042
     Dates: start: 20101124
  24. RITUXAN [Suspect]
     Active Substance: RITUXIMAB
     Route: 042
  25. BENADRYL [Suspect]
     Active Substance: DIPHENHYDRAMINE HYDROCHLORIDE
     Indication: EAR PRURITUS
     Route: 048
  26. ADVAIR HFA [Concomitant]
     Active Substance: FLUTICASONE PROPIONATE\SALMETEROL XINAFOATE
     Route: 065
  27. ACETAMINOFEN [Concomitant]
     Active Substance: ACETAMINOPHEN
     Route: 065
     Dates: start: 20130129
  28. METHOTREXATE. [Concomitant]
     Active Substance: METHOTREXATE
     Route: 065
  29. PMS-HYDROMORPHONE [Concomitant]
     Active Substance: HYDROMORPHONE HYDROCHLORIDE
     Dosage: PRN
     Route: 048
  30. EURO-FOLIC [Concomitant]
     Route: 065

REACTIONS (32)
  - Leukoplakia [Not Recovered/Not Resolved]
  - Choking [Not Recovered/Not Resolved]
  - Dry throat [Recovered/Resolved]
  - Odynophagia [Not Recovered/Not Resolved]
  - Pneumonia [Not Recovered/Not Resolved]
  - Ear pruritus [Recovered/Resolved]
  - Weight decreased [Unknown]
  - Breath sounds abnormal [Unknown]
  - Infusion related reaction [Recovered/Resolved]
  - Hypotension [Unknown]
  - Dysphonia [Not Recovered/Not Resolved]
  - Pyrexia [Unknown]
  - Bacterial infection [Unknown]
  - Nausea [Unknown]
  - Vomiting [Unknown]
  - Dyspnoea [Recovered/Resolved]
  - Emphysema [Not Recovered/Not Resolved]
  - Somnolence [Recovered/Resolved]
  - Oropharyngeal discomfort [Unknown]
  - Asthma [Not Recovered/Not Resolved]
  - Metastatic neoplasm [Not Recovered/Not Resolved]
  - Infusion related reaction [Unknown]
  - Rheumatoid arthritis [Not Recovered/Not Resolved]
  - Lung neoplasm [Not Recovered/Not Resolved]
  - Pharyngeal paraesthesia [Recovered/Resolved]
  - Throat irritation [Recovered/Resolved]
  - Arthritis [Unknown]
  - Paraesthesia ear [Recovered/Resolved]
  - Wound [Not Recovered/Not Resolved]
  - Dyspnoea [Not Recovered/Not Resolved]
  - Arthralgia [Unknown]
  - Skin ulcer [Not Recovered/Not Resolved]

NARRATIVE: CASE EVENT DATE: 20111122
